FAERS Safety Report 8992636 (Version 1)
Quarter: 2013Q1

REPORT INFORMATION
  Report Type: Spontaneous
  Country: DE (occurrence: DE)
  Receive Date: 20130101
  Receipt Date: 20130101
  Transmission Date: 20140127
  Serious: Yes (Other)
  Sender: FDA-Public Use
  Company Number: DE-AMGEN-DEUSP2012084100

PATIENT
  Age: 56 Year
  Sex: Female

DRUGS (3)
  1. ENBREL [Suspect]
     Indication: PSORIATIC ARTHROPATHY
     Dosage: 50 MG, 2X/WEEK
     Dates: start: 20111130
  2. THYROXIN [Concomitant]
     Dosage: UNK
  3. INSULIN [Concomitant]
     Dosage: UNK

REACTIONS (2)
  - Haemorrhagic diathesis [Unknown]
  - Skin reaction [Unknown]
